FAERS Safety Report 7381247-1 (Version None)
Quarter: 2011Q1

REPORT INFORMATION
  Report Type: 
  Country: None (occurrence: None)
  Receive Date: 20110329
  Receipt Date: 20110318
  Transmission Date: 20110831
  Serious: Yes (Death, Hospitalization, Other)
  Sender: FDA-Public Use
  Company Number: US-ALEXION-A201000963

PATIENT
  Sex: Female

DRUGS (1)
  1. SOLIRIS [Suspect]
     Indication: PAROXYSMAL NOCTURNAL HAEMOGLOBINURIA
     Dosage: 900 MG, UNK
     Route: 042

REACTIONS (9)
  - BLOOD GLUCOSE DECREASED [None]
  - HAEMOGLOBIN DECREASED [None]
  - STAPHYLOCOCCAL BACTERAEMIA [None]
  - UROSEPSIS [None]
  - CONVULSION [None]
  - PANCYTOPENIA [None]
  - CARDIAC ARREST [None]
  - SEPSIS [None]
  - PYREXIA [None]
